FAERS Safety Report 6509789-9 (Version None)
Quarter: 2009Q4

REPORT INFORMATION
  Report Type: 
  Country: None (occurrence: None)
  Receive Date: 20091221
  Receipt Date: 20091221
  Transmission Date: 20100525
  Serious: Yes (Other)
  Sender: FDA-Public Use
  Company Number: None

PATIENT
  Age: 72 Year
  Sex: Female
  Weight: 49.8957 kg

DRUGS (1)
  1. CEPHALEXIN [Suspect]
     Dosage: ONE CAPSULE TWICE DAILY
     Dates: start: 20091112, end: 20091116

REACTIONS (5)
  - ARTHRALGIA [None]
  - DRUG TOXICITY [None]
  - MOVEMENT DISORDER [None]
  - PAIN IN EXTREMITY [None]
  - SWELLING [None]
